FAERS Safety Report 8260922-0 (Version None)
Quarter: 2012Q2

REPORT INFORMATION
  Report Type: 
  Country: None (occurrence: None)
  Receive Date: 20120405
  Receipt Date: 20120329
  Transmission Date: 20120825
  Serious: No
  Sender: FDA-Public Use
  Company Number: US-PFIZER INC-2012080996

PATIENT
  Sex: Female
  Weight: 64 kg

DRUGS (6)
  1. ALSUMA [Suspect]
     Indication: MIGRAINE
     Dosage: 6/0.5 MG/ML, AS NEEDED
     Dates: start: 20120301
  2. IMMUNOGLOBULINS [Concomitant]
     Indication: IMMUNE SYSTEM DISORDER
     Dosage: UNK
  3. SYNTHROID [Concomitant]
     Indication: HYPOTHYROIDISM
     Dosage: 0.5 MG, 1X/DAY
  4. ALSUMA [Suspect]
     Indication: SPINAL CORD DISORDER
  5. KEPPRA [Concomitant]
     Indication: MIGRAINE
     Dosage: UNK
  6. ALSUMA [Suspect]
     Indication: VASCULAR HEADACHE

REACTIONS (2)
  - INJECTION SITE PAIN [None]
  - PAIN IN EXTREMITY [None]
